FAERS Safety Report 6252657-0 (Version None)
Quarter: 2009Q2

REPORT INFORMATION
  Report Type: 
  Country: None (occurrence: None)
  Receive Date: 20090629
  Receipt Date: 20090616
  Transmission Date: 20091009
  Serious: Yes (Hospitalization)
  Sender: FDA-Public Use
  Company Number: 440014M09USA

PATIENT
  Sex: Male

DRUGS (1)
  1. SEROSTIM [Suspect]
     Indication: CACHEXIA
     Dosage: 6 MG, 1 IN 1 DAYS,
     Dates: start: 20090101, end: 20090101

REACTIONS (1)
  - BLOOD GLUCOSE INCREASED [None]
